FAERS Safety Report 21729350 (Version 1)
Quarter: 2022Q4

REPORT INFORMATION
  Report Type: Spontaneous
  Country: US (occurrence: US)
  Receive Date: 20221214
  Receipt Date: 20221214
  Transmission Date: 20230113
  Serious: No
  Sender: FDA-Public Use
  Company Number: US-MYLANLABS-202201170445

PATIENT
  Age: 72 Year
  Sex: Female

DRUGS (1)
  1. XALATAN [Suspect]
     Active Substance: LATANOPROST
     Indication: Glaucoma
     Dosage: 2 DROP, 1X/DAY (AT NIGHT 2 DROPS EACH EYE)
     Route: 047

REACTIONS (7)
  - Poor quality product administered [Unknown]
  - Off label use [Unknown]
  - Product container issue [Unknown]
  - Product delivery mechanism issue [Unknown]
  - Extra dose administered [Unknown]
  - Device information output issue [Unknown]
  - Product packaging issue [Unknown]

NARRATIVE: CASE EVENT DATE: 20220801
